FAERS Safety Report 4543950-8 (Version None)
Quarter: 2005Q1

REPORT INFORMATION
  Report Type: 
  Country: None (occurrence: None)
  Receive Date: 20050103
  Receipt Date: 20031201
  Transmission Date: 20050727
  Serious: Yes (Hospitalization)
  Sender: FDA-Public Use
  Company Number: GXKR2003GB00466

PATIENT
  Age: 84 Year
  Sex: Female

DRUGS (7)
  1. CITALOPRAM (NGX) (CITALOPRAM) [Suspect]
     Indication: DEPRESSION
     Dosage: 20 MG, QD, ORAL
     Route: 048
     Dates: start: 20031113, end: 20031117
  2. FUROSEMIDE  (NGX)(FUROSEMIDE) [Suspect]
     Indication: HYPERTENSION
     Dosage: 20 MG, QD, ORAL
     Route: 048
     Dates: end: 20031117
  3. SPIRONOLACTONE [Suspect]
     Indication: HYPERTENSION
     Dosage: 50 MG OM, ORAL
     Route: 048
     Dates: end: 20031117
  4. DILTIAZEM [Concomitant]
  5. BEZAFIBRATE (BEZAFIBRATE) [Concomitant]
  6. ASPIRIN [Concomitant]
  7. RAMIPRIL [Concomitant]

REACTIONS (5)
  - CHEST PAIN [None]
  - CIRCULATORY COLLAPSE [None]
  - HYPONATRAEMIA [None]
  - HYPOTENSION [None]
  - INAPPROPRIATE ANTIDIURETIC HORMONE SECRETION [None]
